FAERS Safety Report 7372533-X (Version None)
Quarter: 2011Q1

REPORT INFORMATION
  Report Type: 
  Country: None (occurrence: None)
  Receive Date: 20110324
  Receipt Date: 20110316
  Transmission Date: 20110831
  Serious: Yes (Hospitalization)
  Sender: FDA-Public Use
  Company Number: US-ASTRAZENECA-2011SE14735

PATIENT
  Age: 68 Year
  Sex: Male
  Weight: 68 kg

DRUGS (4)
  1. CLONIDINE [Concomitant]
     Indication: HYPERTENSION
  2. ZOLADEX [Suspect]
     Indication: PROSTATE CANCER
     Route: 058
     Dates: start: 20040101
  3. COUMADIN [Concomitant]
     Indication: ATRIAL FIBRILLATION
  4. CLONIDINE [Concomitant]
     Indication: SLEEP DISORDER

REACTIONS (2)
  - ROAD TRAFFIC ACCIDENT [None]
  - HIP FRACTURE [None]
